FAERS Safety Report 23083160 (Version 1)
Quarter: 2023Q4

REPORT INFORMATION
  Report Type: Spontaneous
  Country: US (occurrence: None)
  Receive Date: 20231018
  Receipt Date: 20231018
  Transmission Date: 20240110
  Serious: Yes (Hospitalization)
  Sender: FDA-Public Use
  Company Number: None

PATIENT
  Age: 73 Year
  Sex: Male
  Weight: 79.8 kg

DRUGS (1)
  1. HEPARIN SODIUM [Suspect]
     Active Substance: HEPARIN SODIUM
     Dosage: FREQUENCY : AS DIRECTED;?
     Route: 058
     Dates: start: 20220903, end: 20220907

REACTIONS (8)
  - Hypoxia [None]
  - Pulmonary embolism [None]
  - Peripheral artery thrombosis [None]
  - Chronic obstructive pulmonary disease [None]
  - Brain natriuretic peptide increased [None]
  - Myocardial strain imaging abnormal [None]
  - Heparin-induced thrombocytopenia [None]
  - Drug hypersensitivity [None]

NARRATIVE: CASE EVENT DATE: 20220908
